FAERS Safety Report 17456847 (Version 2)
Quarter: 2020Q1

REPORT INFORMATION
  Report Type: Spontaneous
  Country: GR (occurrence: GR)
  Receive Date: 20200225
  Receipt Date: 20200304
  Transmission Date: 20200409
  Serious: No
  Sender: FDA-Public Use
  Company Number: NVSC2020GR019667

PATIENT
  Age: 29 Year
  Sex: Female

DRUGS (1)
  1. ISOPTO CARPINE [Suspect]
     Active Substance: PILOCARPINE HYDROCHLORIDE
     Indication: MYDRIASIS
     Dosage: UNK
     Route: 065
     Dates: start: 20180517

REACTIONS (1)
  - Drug ineffective [Unknown]
